FAERS Safety Report 9785920 (Version 2)
Quarter: 2014Q1

REPORT INFORMATION
  Report Type: Spontaneous
  Country: US (occurrence: None)
  Receive Date: 20131224
  Receipt Date: 20140204
  Transmission Date: 20141002
  Serious: Yes (Other)
  Sender: FDA-Public Use
  Company Number: 20130713

PATIENT
  Age: 7 Day
  Sex: Male
  Weight: 4.2 kg

DRUGS (1)
  1. DOPAMINE HCL [Suspect]
     Indication: PRODUCT USED FOR UNKNOWN INDICATION
     Dosage: 182 UG/KG/MIN OR 15-20 MINUTES
     Route: 051

REACTIONS (10)
  - Accidental overdose [None]
  - Respiratory distress [None]
  - Tachycardia [None]
  - Hypertension [None]
  - Lactic acidosis [None]
  - Haemoglobin decreased [None]
  - Intraventricular haemorrhage neonatal [None]
  - Liver injury [None]
  - Coagulopathy [None]
  - Toxicity to various agents [None]
